FAERS Safety Report 6967903-5 (Version None)
Quarter: 2010Q3

REPORT INFORMATION
  Report Type: 
  Country: None (occurrence: None)
  Receive Date: 20100823
  Receipt Date: 20100629
  Transmission Date: 20110219
  Serious: No
  Sender: FDA-Public Use
  Company Number: 014151

PATIENT
  Sex: Female
  Weight: 100 kg

DRUGS (12)
  1. CIMZIA [Suspect]
     Indication: CROHN'S DISEASE
     Dosage: (SUBCUTANEOUS)
     Route: 058
     Dates: start: 20100508
  2. ENBREL [Concomitant]
  3. METOPROLOL TARTRATE [Concomitant]
  4. HYDROCODONE [Concomitant]
  5. VITAMIN E /05494901/ [Concomitant]
  6. BLACK COHOSH /01456805/ [Concomitant]
  7. DAILY MULTIVITAMIN [Concomitant]
  8. VITAMIN D [Concomitant]
  9. CALCIUM [Concomitant]
  10. PAROXETINE HCL [Concomitant]
  11. PRILOSEC [Concomitant]
  12. VITAMIN B12 NOS [Concomitant]

REACTIONS (4)
  - CONSTIPATION [None]
  - FATIGUE [None]
  - MYALGIA [None]
  - SOMNOLENCE [None]
